FAERS Safety Report 9501288 (Version 1)
Quarter: 2013Q3

REPORT INFORMATION
  Report Type: Spontaneous
  Country: KW (occurrence: KW)
  Receive Date: 20130905
  Receipt Date: 20130905
  Transmission Date: 20140515
  Serious: Yes (Hospitalization)
  Sender: FDA-Public Use
  Company Number: KW-TEVA-429237ISR

PATIENT
  Sex: Female

DRUGS (7)
  1. METHOTREXATE [Suspect]
     Indication: SCLERITIS
     Route: 065
  2. LENALIDOMIDE [Suspect]
     Indication: 5Q MINUS SYNDROME
     Route: 048
  3. ADALIMUMAB [Suspect]
     Indication: SCLERITIS
     Dosage: EVERY OTHER WEEK
     Route: 058
  4. AZATHIOPRINE [Suspect]
     Indication: SCLERITIS
     Route: 065
  5. MYCOPHENOLATE MOFETIL [Suspect]
     Indication: SCLERITIS
     Route: 065
  6. CICLOSPORIN [Suspect]
     Indication: SCLERITIS
     Route: 065
  7. PREDNISOLONE [Concomitant]
     Indication: SCLERITIS
     Dosage: 50MG DAILY
     Route: 048

REACTIONS (3)
  - 5q minus syndrome [Recovering/Resolving]
  - Pancytopenia [Recovered/Resolved]
  - Lower respiratory tract infection [Recovered/Resolved]
